FAERS Safety Report 4956264-9 (Version None)
Quarter: 2006Q1

REPORT INFORMATION
  Report Type: 
  Country: None (occurrence: None)
  Receive Date: 20060329
  Receipt Date: 20060317
  Transmission Date: 20060701
  Serious: Yes (Death)
  Sender: FDA-Public Use
  Company Number: KR-JNJFOC-20060304402

PATIENT
  Sex: Female
  Weight: 49 kg

DRUGS (7)
  1. GALANTAMINE HYDROBROMIDE [Suspect]
     Route: 048
  2. GALANTAMINE HYDROBROMIDE [Suspect]
     Indication: DEMENTIA ALZHEIMER'S TYPE
     Route: 048
  3. NORVASC [Concomitant]
     Indication: HYPERTENSION
     Route: 048
  4. PRITOR [Concomitant]
     Route: 048
  5. PRITOR [Concomitant]
     Indication: HYPERTENSION
     Route: 048
  6. CARVEROL [Concomitant]
     Route: 048
  7. CARVEROL [Concomitant]
     Indication: HYPERTENSION
     Route: 048

REACTIONS (1)
  - PNEUMONIA ASPIRATION [None]
